FAERS Safety Report 8392387-2 (Version None)
Quarter: 2012Q2

REPORT INFORMATION
  Report Type: 
  Country: None (occurrence: None)
  Receive Date: 20120529
  Receipt Date: 20120521
  Transmission Date: 20120825
  Serious: Yes (Hospitalization)
  Sender: FDA-Public Use
  Company Number: US-ACTELION-A-NJ2012-63797

PATIENT

DRUGS (5)
  1. PRADAXA [Concomitant]
  2. TRACLEER [Suspect]
     Indication: PULMONARY ARTERIAL HYPERTENSION
     Dosage: UNK
     Route: 048
     Dates: start: 20060913
  3. CALCIUM CHANNEL BLOCKERS [Concomitant]
  4. REVATIO [Concomitant]
  5. REMODULIN [Concomitant]

REACTIONS (3)
  - CARDIOVERSION [None]
  - ATRIAL FIBRILLATION [None]
  - OEDEMA PERIPHERAL [None]
